FAERS Safety Report 7336588-0 (Version None)
Quarter: 2011Q1

REPORT INFORMATION
  Report Type: 
  Country: None (occurrence: None)
  Receive Date: 20110307
  Receipt Date: 20110228
  Transmission Date: 20110831
  Serious: Yes (Other)
  Sender: FDA-Public Use
  Company Number: PT-GILEAD-2010-0033454

PATIENT
  Sex: Male

DRUGS (3)
  1. EFAVIRENZ [Concomitant]
     Indication: HIV INFECTION
     Route: 048
     Dates: start: 19990828
  2. COMBIVIR [Concomitant]
     Indication: HIV INFECTION
  3. ATRIPLA [Suspect]
     Indication: HIV INFECTION
     Route: 048
     Dates: start: 20091030, end: 20100528

REACTIONS (3)
  - NEPHROPATHY [None]
  - RENAL IMPAIRMENT [None]
  - PROTEIN URINE PRESENT [None]
